FAERS Safety Report 10561195 (Version 2)
Quarter: 2014Q4

REPORT INFORMATION
  Report Type: Spontaneous
  Country: US (occurrence: US)
  Receive Date: 20141103
  Receipt Date: 20141103
  Transmission Date: 20150529
  Serious: Yes (Hospitalization)
  Sender: FDA-Public Use
  Company Number: US-ABBVIE-14K-163-1296022-00

PATIENT
  Age: 28 Year
  Sex: Female
  Weight: 56.75 kg

DRUGS (6)
  1. MORPHINE [Concomitant]
     Active Substance: MORPHINE
     Indication: ABDOMINAL PAIN
  2. MULTIPLE VITAMINS [Concomitant]
     Active Substance: VITAMINS
     Indication: VITAMIN SUPPLEMENTATION
  3. CALCIUM WITH VITAMIN D [Concomitant]
     Active Substance: CALCIUM\VITAMIN D
     Indication: MINERAL SUPPLEMENTATION
  4. APRISO [Concomitant]
     Active Substance: MESALAMINE
     Indication: CROHN^S DISEASE
  5. HUMIRA [Suspect]
     Active Substance: ADALIMUMAB
     Indication: CROHN^S DISEASE
     Route: 065
  6. HYDROMORPHONE [Concomitant]
     Active Substance: HYDROMORPHONE
     Indication: ABDOMINAL PAIN

REACTIONS (1)
  - Gastrointestinal obstruction [Recovered/Resolved]

NARRATIVE: CASE EVENT DATE: 20141002
